FAERS Safety Report 19204014 (Version 4)
Quarter: 2025Q4

REPORT INFORMATION
  Report Type: Spontaneous
  Country: US (occurrence: US)
  Receive Date: 20210503
  Receipt Date: 20251027
  Transmission Date: 20260117
  Serious: Yes (Hospitalization, Other)
  Sender: AUROBINDO
  Company Number: US-MLMSERVICE-20210419-2843532-1

PATIENT
  Age: 54 Year
  Sex: Female

DRUGS (6)
  1. CAPECITABINE [Suspect]
     Active Substance: CAPECITABINE
     Indication: Colorectal cancer stage III
     Dosage: 28000 MG/M2, CYCLICA (1000 MG/M2 TWICE DAILY FOR DAYS 1-14 OF EACH 21-DAY CYCLE)L
     Route: 065
     Dates: start: 2019, end: 2019
  2. OXALIPLATIN [Suspect]
     Active Substance: OXALIPLATIN
     Indication: Colorectal cancer stage III
     Dosage: 85 MG/M2 (EVERY 2 WEEKS (COMPLETED TWO CYCLES))
     Route: 065
     Dates: start: 2016
  3. LEUCOVORIN [Suspect]
     Active Substance: LEUCOVORIN\LEUCOVORIN CALCIUM
     Indication: Colorectal cancer stage III
     Dosage: 400 MG/M2 (COMPLETED TWO CYCLES)
     Route: 065
     Dates: start: 2016
  4. FLUOROURACIL [Suspect]
     Active Substance: FLUOROURACIL
     Indication: Colorectal cancer stage III
     Dosage: 400 MG/M2 (BOLUS OF 5-FU (COMPLETED TWO CYCLES))
     Route: 065
     Dates: start: 2016
  5. FLUOROURACIL [Suspect]
     Active Substance: FLUOROURACIL
     Dosage: 2400 MG/M2 (BOLUS OF 5-FU (400 MG/M2) (COMPLETED TWO CYCLES)
     Route: 041
     Dates: start: 2016
  6. LEUCOVORIN CALCIUM [Suspect]
     Active Substance: LEUCOVORIN CALCIUM
     Indication: Product used for unknown indication
     Dosage: 400 MG/M2
     Route: 065

REACTIONS (7)
  - Neutropenic sepsis [Unknown]
  - Cytopenia [Unknown]
  - Toxicity to various agents [Unknown]
  - Nausea [Unknown]
  - Diarrhoea [Unknown]
  - Dehydration [Unknown]
  - Mucosal inflammation [Unknown]

NARRATIVE: CASE EVENT DATE: 20190101
